FAERS Safety Report 5477212-1 (Version None)
Quarter: 2007Q4

REPORT INFORMATION
  Report Type: 
  Country: None (occurrence: None)
  Receive Date: 20071004
  Receipt Date: 20070926
  Transmission Date: 20080405
  Serious: Yes (Other)
  Sender: FDA-Public Use
  Company Number: B0489131A

PATIENT
  Age: 5 Year
  Sex: Female
  Weight: 25 kg

DRUGS (1)
  1. SERETIDE [Suspect]
     Dosage: 1PUFF TWICE PER DAY
     Dates: start: 20070830, end: 20070904

REACTIONS (8)
  - ASTHMA [None]
  - DERMATITIS [None]
  - HYPERSENSITIVITY [None]
  - LIP SWELLING [None]
  - PRODUCTIVE COUGH [None]
  - PYREXIA [None]
  - RASH GENERALISED [None]
  - URTICARIA [None]
